FAERS Safety Report 9552189 (Version 1)
Quarter: 2013Q3

REPORT INFORMATION
  Report Type: Spontaneous
  Country: US (occurrence: None)
  Receive Date: 20130724
  Receipt Date: 20130724
  Transmission Date: 20140515
  Serious: Yes (Hospitalization, Other)
  Sender: FDA-Public Use
  Company Number: PHEH2013US001194

PATIENT
  Sex: Male

DRUGS (2)
  1. GLEEVEC (IMATINIB) [Suspect]
     Indication: GASTROINTESTINAL STROMAL TUMOUR
     Route: 048
  2. SUTENT (SUNITINIB MALATE) [Suspect]
     Indication: GASTROINTESTINAL STROMAL TUMOUR

REACTIONS (5)
  - Pyrexia [None]
  - Oropharyngeal pain [None]
  - Diarrhoea [None]
  - Gastrointestinal stromal tumour [None]
  - Malignant neoplasm progression [None]
